FAERS Safety Report 25032304 (Version 3)
Quarter: 2025Q4

REPORT INFORMATION
  Report Type: Report from Study
  Country: CN (occurrence: CN)
  Receive Date: 20250303
  Receipt Date: 20251112
  Transmission Date: 20260118
  Serious: Yes (Hospitalization, Other)
  Sender: BAXTER
  Company Number: CN-BAXTER-2025BAX011879

PATIENT
  Age: 61 Year
  Sex: Female
  Weight: 65 kg

DRUGS (19)
  1. CYCLOPHOSPHAMIDE [Suspect]
     Active Substance: CYCLOPHOSPHAMIDE
     Indication: Follicular lymphoma
     Dosage: 705.93 MG (CYCLE1-6 (21 DAY CYCLE) ON DAY 1), EVERY 3 WK
     Route: 042
     Dates: start: 20241205
  2. EPCORITAMAB [Suspect]
     Active Substance: EPCORITAMAB
     Indication: Follicular lymphoma
     Dosage: UNK (DRUG NOT ADMINISTERED)
     Route: 065
  3. DOXORUBICIN [Suspect]
     Active Substance: DOXORUBICIN
     Indication: Follicular lymphoma
     Dosage: 47.06 MG (CYCLE1-6 (21 DAY CYCLE) ON DAY 1), EVERY 3 WK
     Route: 042
     Dates: start: 20241205
  4. RITUXIMAB [Suspect]
     Active Substance: RITUXIMAB
     Indication: Follicular lymphoma
     Dosage: 627.49 MG (CYCLE 1-8 (21 DAY CYCLE) ON DAY 1), EVERY 3 WK
     Route: 042
     Dates: start: 20241204
  5. PREDNISONE [Suspect]
     Active Substance: PREDNISONE
     Indication: Follicular lymphoma
     Dosage: 100 MG, QD (CYCLE1-6 (21 DAY CYCLE) ON D1-5, EVERY 1 DAYS)
     Route: 048
     Dates: start: 20241204
  6. VINCRISTINE [Suspect]
     Active Substance: VINCRISTINE
     Indication: Follicular lymphoma
     Dosage: 2 MG (CYCLE1-6 (21 DAY CYCLE) ON DAY 1), EVERY 3 WK
     Route: 042
     Dates: start: 20241205
  7. ENOXAPARIN SODIUM [Concomitant]
     Active Substance: ENOXAPARIN SODIUM
     Indication: Thrombosis prophylaxis
     Dosage: 400 IU, (EVERY 1 DAYS)
     Route: 065
     Dates: start: 20241204
  8. FUROSEMIDE [Concomitant]
     Active Substance: FUROSEMIDE
     Indication: Hypertension
     Dosage: 20 MG, QD (EVERY 1 DAYS)
     Route: 065
     Dates: start: 20241214
  9. PROMETHAZINE HYDROCHLORIDE [Concomitant]
     Active Substance: PROMETHAZINE HYDROCHLORIDE
     Indication: Prophylaxis of nausea and vomiting
     Dosage: 40 MG, AS NECESSARY
     Route: 065
     Dates: start: 20241204
  10. PROMETHAZINE HYDROCHLORIDE [Concomitant]
     Active Substance: PROMETHAZINE HYDROCHLORIDE
     Indication: Nausea
  11. ONDANSETRON HYDROCHLORIDE [Concomitant]
     Active Substance: ONDANSETRON HYDROCHLORIDE
     Indication: Nausea
     Dosage: 8 MG, QD (EVERY 1 DAYS)
     Route: 065
     Dates: start: 20241205, end: 20250106
  12. ONDANSETRON HYDROCHLORIDE [Concomitant]
     Active Substance: ONDANSETRON HYDROCHLORIDE
     Indication: Vomiting
     Dosage: 8 MG, QD (EVERY 1 DAYS)
     Route: 065
     Dates: start: 20241225, end: 20241227
  13. Mucopolysaccharide polysulfate [Concomitant]
     Indication: Thrombosis prophylaxis
     Dosage: UNK, 3/DAY
     Route: 065
     Dates: start: 20241204
  14. DICLOFENAC SODIUM [Concomitant]
     Active Substance: DICLOFENAC SODIUM
     Indication: Antipyresis
     Dosage: 50 MG, AS NECESSARY
     Route: 065
     Dates: start: 20241204
  15. GLUTATHIONE [Concomitant]
     Active Substance: GLUTATHIONE
     Indication: Aspartate aminotransferase increased
     Dosage: 1.8 G, QD (EVERY 1 DAYS)
     Route: 065
     Dates: start: 20241225
  16. DEXAMETHASONE SODIUM PHOSPHATE [Concomitant]
     Active Substance: DEXAMETHASONE SODIUM PHOSPHATE
     Indication: Allergy prophylaxis
     Dosage: 5 MG, QD (EVERY 1 DAYS)
     Route: 065
     Dates: start: 20241225
  17. ESOMEPRAZOLE SODIUM [Concomitant]
     Active Substance: ESOMEPRAZOLE SODIUM
     Indication: Gastrointestinal disorder prophylaxis
     Dosage: 40 MG, EVERY 1 DAYS
     Route: 065
     Dates: start: 20250115
  18. VITAMIN B6 [Concomitant]
     Active Substance: PYRIDOXINE HYDROCHLORIDE
     Indication: Fluid replacement
     Dosage: 2 G,EVERY 1 DAYS
     Dates: start: 20241224
  19. DEXRAZOXANE [Concomitant]
     Active Substance: DEXRAZOXANE
     Indication: Cardiovascular event prophylaxis
     Dosage: 941 MG, EVERY 1 DAYS
     Dates: start: 20241226

REACTIONS (1)
  - Diabetes mellitus [Recovered/Resolved]

NARRATIVE: CASE EVENT DATE: 20250124
